FAERS Safety Report 9217504 (Version 1)
Quarter: 2013Q2

REPORT INFORMATION
  Report Type: Spontaneous
  Country: US (occurrence: US)
  Receive Date: 20130408
  Receipt Date: 20130408
  Transmission Date: 20140414
  Serious: Yes (Other)
  Sender: FDA-Public Use
  Company Number: US-BAYER-2013-041048

PATIENT
  Sex: Female

DRUGS (2)
  1. CIPRO [Suspect]
  2. LYRICA [Concomitant]
     Indication: FIBROMYALGIA
     Dosage: 300 MG, BID

REACTIONS (1)
  - Anaphylactic reaction [None]
